FAERS Safety Report 9123120 (Version 1)
Quarter: 2013Q1

REPORT INFORMATION
  Report Type: Spontaneous
  Country: US (occurrence: None)
  Receive Date: 20130128
  Receipt Date: 20130128
  Transmission Date: 20140127
  Serious: Yes (Death)
  Sender: FDA-Public Use
  Company Number: EUS-2013-00024

PATIENT
  Age: 2 Year
  Sex: Male

DRUGS (8)
  1. ASPARAGINASE (UNSPECIFIED) (ASPARAGINASE) [Suspect]
     Indication: B-CELL LYMPHOMA
  2. PREDNISONE (PREDNISONE) (PREDNISONE) [Concomitant]
  3. VINCRISTINE (VINCRISTINE) (VINCRISTINE) [Concomitant]
  4. DAUNORUBICIN (DAUNORUBICIN) (DAUNORUBICIN) [Concomitant]
  5. METHOTREXATE (METHOTREXATE) (METHOTREXATE) [Concomitant]
  6. CYTARABINE (CYTARABINE) (CYTARABINE) [Concomitant]
  7. ADRIAMYCIN (DOXORUBICIN) (DOXORUBICIN) [Concomitant]
  8. CYCLOPHOSPHAMIDE (CYCLOPHOSPHAMIDE) (CYCLOPHOSPHAMIDE) [Concomitant]

REACTIONS (1)
  - Sepsis [None]
